FAERS Safety Report 5033379-0 (Version None)
Quarter: 2006Q2

REPORT INFORMATION
  Report Type: 
  Country: None (occurrence: None)
  Receive Date: 20060512
  Receipt Date: 20060323
  Transmission Date: 20061013
  Serious: No
  Sender: FDA-Public Use
  Company Number: SUS1-2006-00323

PATIENT
  Age: 76 Year
  Sex: Male
  Weight: 81.2 kg

DRUGS (9)
  1. FOSRENOL [Suspect]
     Indication: BLOOD CALCIUM
     Dosage: SEE IMAGE
     Dates: start: 20060101, end: 20060201
  2. FOSRENOL [Suspect]
     Indication: BLOOD CALCIUM
     Dosage: SEE IMAGE
     Dates: start: 20060314
  3. NORVASC /00972401/ (AMLODIPINE) [Concomitant]
  4. METOPROLOL SUCCINATE [Concomitant]
  5. AVAPRO [Concomitant]
  6. RENAX (ASCORBIC ACID, BIOTIN, FOLIC ACID, THIAMINE, NICOTINIC ACID, PY [Concomitant]
  7. SENSIPAR (CINACALCET HYDROCHLORIDE) [Concomitant]
  8. LANTUS [Concomitant]
  9. NOVOPEN [Concomitant]

REACTIONS (2)
  - PHARMACEUTICAL PRODUCT COMPLAINT [None]
  - TOOTH INJURY [None]
